FAERS Safety Report 7057397-6 (Version None)
Quarter: 2010Q4

REPORT INFORMATION
  Report Type: 
  Country: None (occurrence: None)
  Receive Date: 20101022
  Receipt Date: 20101004
  Transmission Date: 20110411
  Serious: Yes (Death)
  Sender: FDA-Public Use
  Company Number: JP-AMGEN INC.-KDC442645

PATIENT

DRUGS (6)
  1. PANITUMUMAB [Suspect]
     Indication: COLORECTAL CANCER
     Dosage: 400 MG, Q2WK
     Route: 041
     Dates: start: 20100818, end: 20100818
  2. HIRUDOID SOFT [Concomitant]
     Route: 062
  3. MYSER [Concomitant]
     Route: 062
  4. ALMETA [Concomitant]
     Route: 062
  5. RINDERON-V [Concomitant]
     Route: 062
  6. MINOCYCLINE HCL [Concomitant]
     Route: 048

REACTIONS (2)
  - CARDIAC FAILURE [None]
  - SEPTIC SHOCK [None]
